FAERS Safety Report 23987170 (Version 1)
Quarter: 2024Q2

REPORT INFORMATION
  Report Type: Spontaneous
  Country: IT (occurrence: IT)
  Receive Date: 20240618
  Receipt Date: 20240618
  Transmission Date: 20240716
  Serious: Yes (Death)
  Sender: FDA-Public Use
  Company Number: IT-Oxford Pharmaceuticals, LLC-2158252

PATIENT
  Age: 20 Year
  Sex: Male

DRUGS (5)
  1. ALPRAZOLAM [Suspect]
     Active Substance: ALPRAZOLAM
     Indication: Product used for unknown indication
  2. FURANYLFENTANYL [Suspect]
     Active Substance: FURANYLFENTANYL
  3. .ALPHA.-HYDROXYALPRAZOLAM [Suspect]
     Active Substance: .ALPHA.-HYDROXYALPRAZOLAM
  4. DIAZEPAM [Suspect]
     Active Substance: DIAZEPAM
  5. NORDAZEPAM [Suspect]
     Active Substance: NORDAZEPAM

REACTIONS (1)
  - Toxicity to various agents [Fatal]
